FAERS Safety Report 9798173 (Version 1)
Quarter: 2014Q1

REPORT INFORMATION
  Report Type: Spontaneous
  Country: US (occurrence: None)
  Receive Date: 20140103
  Receipt Date: 20140103
  Transmission Date: 20141002
  Serious: No
  Sender: FDA-Public Use
  Company Number: None

PATIENT
  Age: 49 Year
  Sex: Female
  Weight: 115.67 kg

DRUGS (4)
  1. BYDUREON [Suspect]
     Indication: DIABETES MELLITUS INADEQUATE CONTROL
     Dosage: DAILY INJECTION  ONCE DAILY  INTO THE MUSCLE
     Route: 030
  2. ASPIRIN 81MG [Concomitant]
  3. VITAMIN D [Concomitant]
  4. PROBIOTICS [Concomitant]

REACTIONS (2)
  - Injection site mass [None]
  - Injection site pruritus [None]
